FAERS Safety Report 12494126 (Version 1)
Quarter: 2016Q2

REPORT INFORMATION
  Report Type: Report from Study
  Country: BR (occurrence: BR)
  Receive Date: 20160623
  Receipt Date: 20160623
  Transmission Date: 20160815
  Serious: Yes (Other)
  Sender: FDA-Public Use
  Company Number: PHHY2016BR079468

PATIENT
  Sex: Male
  Weight: 65 kg

DRUGS (4)
  1. XOLAIR [Suspect]
     Active Substance: OMALIZUMAB
     Dosage: 2 DF, 2 AMPOULES EVERY 28 DAYS (APPROXIMATELY 4 YEARS)
     Route: 058
  2. XOLAIR [Suspect]
     Active Substance: OMALIZUMAB
     Indication: ASTHMA
     Dosage: 300 MG, QMO
     Route: 058
     Dates: start: 20091001
  3. FORASEQ [Suspect]
     Active Substance: BUDESONIDE\FORMOTEROL FUMARATE
     Indication: ASTHMA
     Dosage: 1 DF, BID (BUDESONIDE 400 UG, FORMOTEROL 12 UG) APPROXIMATELY 10 YEARS AGO
     Route: 055
  4. ASA [Concomitant]
     Active Substance: ASPIRIN
     Indication: PHLEBECTOMY
     Dosage: 1 DF, QD
     Route: 048
     Dates: start: 2002

REACTIONS (11)
  - Blood cholesterol increased [Unknown]
  - Sinusitis [Unknown]
  - Prostate cancer [Unknown]
  - Influenza [Recovering/Resolving]
  - Dysstasia [Unknown]
  - Cough [Unknown]
  - Seizure [Unknown]
  - Ulcer [Unknown]
  - Cerebrovascular accident [Unknown]
  - Hypertension [Unknown]
  - Paranasal sinus hypersecretion [Unknown]

NARRATIVE: CASE EVENT DATE: 2013
